FAERS Safety Report 8281516-7 (Version None)
Quarter: 2012Q2

REPORT INFORMATION
  Report Type: 
  Country: None (occurrence: None)
  Receive Date: 20120410
  Receipt Date: 20120330
  Transmission Date: 20120825
  Serious: Yes (Disabling)
  Sender: FDA-Public Use
  Company Number: AUR-APL-2012-00982

PATIENT
  Age: 81 Year
  Sex: Male
  Weight: 81 kg

DRUGS (7)
  1. DOXAZOSIN MESYLATE [Concomitant]
  2. FINASTERIDE [Suspect]
     Indication: PRODUCT USED FOR UNKNOWN INDICATION
     Dates: start: 20111116
  3. MEBEVERINE HYDROCHLORIDE (MEBEVERINE HYDROCHLORIDE) [Concomitant]
  4. VISCOTEARS (CARBOMER) [Concomitant]
  5. WARFARIN SODIUM [Concomitant]
  6. ISPAGHULA HUSK (PLANTAGO OVATA HUSK) [Concomitant]
  7. SOTALOL HCL [Concomitant]

REACTIONS (1)
  - URINE FLOW DECREASED [None]
